FAERS Safety Report 4743461-0 (Version None)
Quarter: 2005Q3

REPORT INFORMATION
  Report Type: 
  Country: None (occurrence: None)
  Receive Date: 20050810
  Receipt Date: 20050810
  Transmission Date: 20060218
  Serious: Yes (Hospitalization)
  Sender: FDA-Public Use
  Company Number: None

PATIENT
  Age: 61 Year
  Sex: Male
  Weight: 99.7913 kg

DRUGS (7)
  1. VERAPAMIL [Suspect]
     Indication: HYPERTENSION
     Dosage: 240 MG SA PO DAILY
     Route: 048
     Dates: start: 20030606
  2. HCTZ 25/TRIAMTERENE [Concomitant]
  3. METOPROLOL TARTRATE [Concomitant]
  4. SERTRALINE HCL [Concomitant]
  5. ACYCLOVIR [Concomitant]
  6. CITALOPRAM HYDROBROMIDE [Concomitant]
  7. RISPERIDONE [Concomitant]

REACTIONS (2)
  - BRADYCARDIA [None]
  - DIZZINESS [None]
